FAERS Safety Report 14538494 (Version 7)
Quarter: 2018Q3

REPORT INFORMATION
  Report Type: Report from Study
  Country: BE (occurrence: BE)
  Receive Date: 20180216
  Receipt Date: 20180828
  Transmission Date: 20181010
  Serious: Yes (Hospitalization)
  Sender: FDA-Public Use
  Company Number: BE-ROCHE-2074748

PATIENT
  Age: 58 Year
  Sex: Female
  Weight: 61.2 kg

DRUGS (54)
  1. SELOKEN [Concomitant]
     Active Substance: METOPROLOL
     Indication: TACHYCARDIA
     Route: 042
     Dates: start: 20180221, end: 20180222
  2. AACIDEXAM [Concomitant]
     Active Substance: DEXAMETHASONE
     Indication: NAUSEA
     Route: 042
     Dates: start: 20180214, end: 20180218
  3. ZOFSETRON [Concomitant]
     Indication: VOMITING
  4. XANAX [Concomitant]
     Active Substance: ALPRAZOLAM
     Indication: ANXIETY
     Route: 048
     Dates: start: 201802, end: 20180220
  5. EMCONCOR [Concomitant]
     Active Substance: BISOPROLOL FUMARATE
     Indication: TACHYCARDIA
     Route: 048
     Dates: start: 20180201, end: 20180213
  6. MAGNESIUM PHOSPHATE [Concomitant]
     Active Substance: MAGNESIUM PHOSPHATE, TRIBASIC, PENTAHYDRATE
     Route: 042
     Dates: start: 20180209, end: 20180213
  7. LITICAN [Concomitant]
     Active Substance: ALIZAPRIDE HYDROCHLORIDE
     Indication: NAUSEA
     Route: 042
     Dates: start: 20180101
  8. IMODIUM [Concomitant]
     Active Substance: LOPERAMIDE HYDROCHLORIDE
     Indication: DIARRHOEA
     Route: 048
     Dates: start: 20180118
  9. AMOXICLAV MYLAN [Concomitant]
     Indication: DEVICE RELATED SEPSIS
     Route: 042
     Dates: start: 20180126, end: 20180127
  10. DIPIDOLOR [Concomitant]
     Active Substance: PIRITRAMIDE
     Indication: PAIN
     Route: 042
     Dates: start: 20180216, end: 20180216
  11. CALCIUMGLUCONAAT [Concomitant]
     Indication: HYPOCALCAEMIA
     Route: 042
     Dates: start: 20180212, end: 20180213
  12. KAYEXALATE [Concomitant]
     Active Substance: SODIUM POLYSTYRENE SULFONATE
     Indication: HYPERKALAEMIA
     Route: 048
     Dates: start: 20180224, end: 20180225
  13. RIOPAN (BELGIUM) [Concomitant]
     Indication: NAUSEA
     Route: 048
     Dates: start: 20180102, end: 20180213
  14. VANCOMYCINE [Concomitant]
     Active Substance: VANCOMYCIN
     Indication: DEVICE RELATED SEPSIS
     Route: 042
     Dates: start: 20180129, end: 20180209
  15. PRIMPERAN [Concomitant]
     Active Substance: METOCLOPRAMIDE HYDROCHLORIDE
     Indication: NAUSEA
     Route: 042
     Dates: start: 20180215, end: 20180218
  16. PRIMPERAN [Concomitant]
     Active Substance: METOCLOPRAMIDE HYDROCHLORIDE
     Indication: VOMITING
  17. ZOFSETRON [Concomitant]
     Indication: NAUSEA
     Route: 042
     Dates: start: 20180213
  18. COBIMETINIB. [Suspect]
     Active Substance: COBIMETINIB
     Indication: BREAST CANCER METASTATIC
     Dosage: 60 MILLIGRAMS (MG) PER DAY, ONCE A DAY, ON DAY 3 THROUGH DAY 23 OF EACH 28?DAY TREATMENT CYCLE (AS P
     Route: 048
     Dates: start: 20171231
  19. OXYNORM [Concomitant]
     Active Substance: OXYCODONE HYDROCHLORIDE
     Indication: PAIN
     Route: 048
     Dates: start: 20180212
  20. MORFINE [Concomitant]
     Active Substance: MORPHINE
     Indication: PAIN
     Route: 058
  21. PRUNASINE (BELGIUM) [Concomitant]
     Indication: CONSTIPATION
     Route: 048
     Dates: start: 20180112, end: 20180115
  22. LINISOL [Concomitant]
     Active Substance: LIDOCAINE HYDROCHLORIDE
     Indication: ANAESTHESIA
     Route: 042
     Dates: start: 20180215, end: 20180215
  23. DEHYDROBENZPERIDOL [Concomitant]
     Active Substance: DROPERIDOL
     Indication: NAUSEA
     Route: 042
     Dates: start: 20180215, end: 20180218
  24. GYNO?DAKTARIN [Concomitant]
     Active Substance: MICONAZOLE
     Indication: ERYTHEMA
     Route: 061
     Dates: start: 20180227, end: 20180311
  25. VITAMINE B1 [Concomitant]
     Active Substance: THIAMINE HYDROCHLORIDE
     Route: 042
     Dates: start: 20180222
  26. SODIUM BICARBONATE. [Concomitant]
     Active Substance: SODIUM BICARBONATE
     Indication: BLOOD BICARBONATE DECREASED
     Route: 042
     Dates: start: 20180224, end: 20180227
  27. ATEZOLIZUMAB. [Suspect]
     Active Substance: ATEZOLIZUMAB
     Indication: BREAST CANCER METASTATIC
     Dosage: 840 MG IV EVERY 2 WEEKS ON DAYS 1 AND 15 OF EACH 28?DAY TREATMENT CYCLE (AS PER PROTOCOL).?MOST RECE
     Route: 042
     Dates: start: 20171229
  28. ZOLEDRONIC ACID. [Concomitant]
     Active Substance: ZOLEDRONIC ACID
     Route: 042
  29. DUROGESIC [Concomitant]
     Active Substance: FENTANYL
     Indication: PAIN
     Dosage: 37 OTHER
     Route: 062
  30. TAZOCIN [Concomitant]
     Active Substance: PIPERACILLIN SODIUM\TAZOBACTAM SODIUM
     Indication: DEVICE RELATED SEPSIS
     Route: 042
     Dates: start: 20180127, end: 20180212
  31. LOSFERRON [Concomitant]
     Indication: BLOOD IRON DECREASED
     Route: 048
     Dates: start: 20180208, end: 20180208
  32. MAGNESIUM PHOSPHATE [Concomitant]
     Active Substance: MAGNESIUM PHOSPHATE, TRIBASIC, PENTAHYDRATE
     Indication: HYPOMAGNESAEMIA
     Route: 042
     Dates: start: 20180228, end: 20180315
  33. NAB?PACLITAXEL [Suspect]
     Active Substance: PACLITAXEL
     Indication: BREAST CANCER METASTATIC
     Dosage: 100 MG/M^2 BY IV INFUSION ON DAYS 1, 8, AND 15 OF EACH 28 DAY CYCLE (AS PER PROTOCOL).?MOST RECENT D
     Route: 042
     Dates: start: 20171229
  34. OMEPRAZOLE. [Concomitant]
     Active Substance: OMEPRAZOLE
     Indication: PROPHYLAXIS
     Route: 048
  35. STEOVIT D3 [Concomitant]
     Active Substance: CALCIUM CARBONATE\CHOLECALCIFEROL
     Indication: SUPPORTIVE CARE
     Route: 048
     Dates: start: 20180119, end: 20180208
  36. CIPROFLOXACINE MYLAN [Concomitant]
     Active Substance: CIPROFLOXACIN
     Indication: URINARY TRACT INFECTION
     Route: 048
     Dates: start: 20180120, end: 20180126
  37. TEMESTA EXPIDET [Concomitant]
     Active Substance: LORAZEPAM
     Indication: PAIN
     Route: 060
     Dates: start: 20180101
  38. MIDAZOLAM [Concomitant]
     Active Substance: MIDAZOLAM HYDROCHLORIDE
     Indication: BRONCHOSCOPY
     Route: 042
     Dates: start: 20180212, end: 20180212
  39. MEDICA [Concomitant]
     Indication: OROPHARYNGEAL PAIN
     Route: 048
     Dates: start: 20180218, end: 20180218
  40. FRAXIPARINE [Concomitant]
     Active Substance: NADROPARIN CALCIUM
     Indication: THROMBOSIS PROPHYLAXIS
     Route: 058
     Dates: start: 20180202
  41. DEHYDROBENZPERIDOL [Concomitant]
     Active Substance: DROPERIDOL
     Indication: VOMITING
  42. KEPPRA [Concomitant]
     Active Substance: LEVETIRACETAM
     Indication: EPILEPSY
     Route: 042
     Dates: start: 20180228, end: 20180316
  43. VALIUM [Concomitant]
     Active Substance: DIAZEPAM
     Indication: EPILEPSY
     Route: 042
     Dates: start: 20180228, end: 20180305
  44. CEFTAZIDIM [Concomitant]
     Active Substance: CEFTAZIDIME
     Route: 042
     Dates: start: 20180313, end: 20180313
  45. HEXTRIL [Concomitant]
     Active Substance: HEXETIDINE
     Route: 050
     Dates: start: 20180315, end: 20180316
  46. MS DIRECT [Concomitant]
     Active Substance: MORPHINE SULFATE
     Indication: PAIN
     Route: 048
     Dates: start: 20180213
  47. LAXOBERON [Concomitant]
     Active Substance: SODIUM PICOSULFATE
     Indication: CONSTIPATION
     Route: 048
     Dates: start: 20180115
  48. NEXIAM [Concomitant]
     Active Substance: ESOMEPRAZOLE
     Indication: NAUSEA
     Route: 048
     Dates: start: 20180102, end: 20180213
  49. PARACETAMOL [Concomitant]
     Active Substance: ACETAMINOPHEN
     Indication: PAIN
     Route: 042
     Dates: start: 20180101, end: 20180116
  50. PARACETAMOL [Concomitant]
     Active Substance: ACETAMINOPHEN
     Indication: PYREXIA
     Route: 042
     Dates: start: 20180129
  51. AACIDEXAM [Concomitant]
     Active Substance: DEXAMETHASONE
     Indication: VOMITING
  52. PANTOMED (BELGIUM) [Concomitant]
     Indication: NAUSEA
     Route: 042
     Dates: start: 20180221
  53. ZOVIRAX [Concomitant]
     Active Substance: ACYCLOVIR
     Indication: HERPES ZOSTER
     Route: 042
     Dates: start: 20180306, end: 20180314
  54. TARGOCID [Concomitant]
     Active Substance: TEICOPLANIN
     Route: 042
     Dates: start: 20180313, end: 20180316

REACTIONS (2)
  - Pneumocystis jirovecii pneumonia [Not Recovered/Not Resolved]
  - Encephalopathy [Not Recovered/Not Resolved]

NARRATIVE: CASE EVENT DATE: 20180212
